FAERS Safety Report 13229697 (Version 2)
Quarter: 2017Q1

REPORT INFORMATION
  Report Type: Spontaneous
  Country: BR (occurrence: BR)
  Receive Date: 20170214
  Receipt Date: 20170221
  Transmission Date: 20170428
  Serious: Yes (Other)
  Sender: FDA-Public Use
  Company Number: BR-TORRENT-00003796

PATIENT
  Age: 76 Year
  Sex: Female
  Weight: 51 kg

DRUGS (7)
  1. TYLENOL [Concomitant]
     Active Substance: ACETAMINOPHEN
  2. SYNTHROID [Concomitant]
     Active Substance: LEVOTHYROXINE SODIUM
  3. VASOPRIL [Concomitant]
     Active Substance: FOSINOPRIL
  4. EZETROL [Concomitant]
     Active Substance: EZETIMIBE
  5. SERENATA [Suspect]
     Active Substance: SERTRALINE HYDROCHLORIDE
  6. VENLIFT OD [Suspect]
     Active Substance: VENLAFAXINE HYDROCHLORIDE
  7. LEXOTAN [Concomitant]
     Active Substance: BROMAZEPAM

REACTIONS (7)
  - Drug ineffective [Unknown]
  - Tendon rupture [Recovered/Resolved]
  - Drug ineffective [Unknown]
  - Malaise [Not Recovered/Not Resolved]
  - Gastritis [Unknown]
  - Nausea [Not Recovered/Not Resolved]
  - Blood sodium abnormal [Unknown]

NARRATIVE: CASE EVENT DATE: 20120815
